FAERS Safety Report 16901518 (Version 1)
Quarter: 2019Q4

REPORT INFORMATION
  Report Type: Spontaneous
  Country: FR (occurrence: FR)
  Receive Date: 20191009
  Receipt Date: 20191009
  Transmission Date: 20200122
  Serious: Yes (Hospitalization, Other)
  Sender: FDA-Public Use
  Company Number: FR-AUROBINDO-AUR-APL-2019-064622

PATIENT
  Age: 83 Year
  Sex: Female
  Weight: 68 kg

DRUGS (1)
  1. AMOXICILLIN ARROW  DISPERSIBLE TABLET 1G [Suspect]
     Active Substance: AMOXICILLIN
     Indication: ERYSIPELAS
     Dosage: 3 GRAM
     Route: 048
     Dates: start: 20180915, end: 20180917

REACTIONS (1)
  - Toxic skin eruption [Recovered/Resolved]

NARRATIVE: CASE EVENT DATE: 20190917
